FAERS Safety Report 5455184-3 (Version None)
Quarter: 2007Q3

REPORT INFORMATION
  Report Type: 
  Country: None (occurrence: None)
  Receive Date: 20070914
  Receipt Date: 20070904
  Transmission Date: 20080115
  Serious: Yes (Hospitalization)
  Sender: FDA-Public Use
  Company Number: 2007-04069

PATIENT
  Age: 44 Year
  Sex: Female

DRUGS (4)
  1. TRELSTAR DEPOT (WITH CLI'N'JECT) (WATSON LABORATORIES)(TRIPORELIN PAMO [Suspect]
     Indication: BREAST CANCER
     Dosage: 3.75 MG, INTRAMUSCULAR
     Route: 030
     Dates: start: 20060816, end: 20070718
  2. TAMOXIFEN CITRATE [Concomitant]
  3. TAXOTERE [Concomitant]
  4. HERCEPTIN [Concomitant]

REACTIONS (2)
  - CEREBRAL INFARCTION [None]
  - CEREBROVASCULAR ACCIDENT [None]
